FAERS Safety Report 8021161-1 (Version None)
Quarter: 2011Q4

REPORT INFORMATION
  Report Type: 
  Country: None (occurrence: None)
  Receive Date: 20111222
  Receipt Date: 20110112
  Transmission Date: 20120403
  Serious: Yes (Life-Threatening)
  Sender: FDA-Public Use
  Company Number: GAM-159-10-ES

PATIENT
  Age: 88 Year
  Sex: Female

DRUGS (8)
  1. EMULIQUEN LAXANTE (PARAFFIN AND SODIUM PICOSULFATE) [Concomitant]
  2. ACTOCORTINA (HYDROCORTISONE) [Concomitant]
  3. ACYCLOVIR [Concomitant]
  4. METHYLPREDNISOLONE [Concomitant]
  5. CHLORPHENIRAMINE MALEATE [Concomitant]
  6. OCTAGAM [Suspect]
     Indication: THROMBOCYTOPENIA
     Dosage: 1000 MG/KG - 1 X 1 / D; INTRAVENOUS (NOT OTHERWISE SPECIFIED)
     Route: 042
     Dates: start: 20100707, end: 20100807
  7. ACETAMINOPHEN [Concomitant]
  8. OCTAGAM [Suspect]

REACTIONS (7)
  - FACIAL PARESIS [None]
  - COMA [None]
  - APHASIA [None]
  - HEMIANOPIA [None]
  - HEMIPARESIS [None]
  - CEREBRAL ISCHAEMIA [None]
  - PARAESTHESIA [None]
